FAERS Safety Report 9372621 (Version 2)
Quarter: 2014Q2

REPORT INFORMATION
  Report Type: Report from Study
  Country: US (occurrence: US)
  Receive Date: 20130627
  Receipt Date: 20140626
  Transmission Date: 20141212
  Serious: Yes (Other)
  Sender: FDA-Public Use
  Company Number: US-MYLANLABS-2013S1002966

PATIENT
  Age: 62 Year
  Sex: Male

DRUGS (16)
  1. CLOZAPINE TABLETS [Suspect]
     Indication: PSYCHOTIC DISORDER
     Route: 048
     Dates: end: 20130129
  2. SEROQUEL [Concomitant]
     Route: 048
  3. TRAZODONE [Concomitant]
     Route: 048
  4. DEPAKOTE [Concomitant]
     Route: 048
  5. LORATADINE [Concomitant]
     Route: 048
  6. FISH OIL [Concomitant]
     Route: 048
  7. MULTIVITAMIN [Concomitant]
     Route: 048
  8. BENZOTROPINE [Concomitant]
     Route: 048
  9. PRILOSEC [Concomitant]
     Route: 048
  10. COLACE [Concomitant]
     Route: 048
  11. DOXAZOSIN [Concomitant]
     Route: 048
  12. MOTRIN [Concomitant]
     Route: 048
  13. CLONAZEPAM [Concomitant]
     Route: 048
  14. TYLENOL [Concomitant]
     Route: 048
  15. ALBUTEROL [Concomitant]
     Route: 055
  16. DESMOPRESSIN [Concomitant]
     Route: 048

REACTIONS (1)
  - Granulocytopenia [Not Recovered/Not Resolved]
